FAERS Safety Report 18681341 (Version 1)
Quarter: 2020Q4

REPORT INFORMATION
  Report Type: Spontaneous
  Country: US (occurrence: US)
  Receive Date: 20201229
  Receipt Date: 20201229
  Transmission Date: 20210114
  Serious: Yes (Other)
  Sender: FDA-Public Use
  Company Number: US-PURDUE-USA-2020-0192390

PATIENT
  Age: 57 Year

DRUGS (1)
  1. OXYCODONE HCL CR TABLETS (SIMILAR TO NDA 22-272) [Suspect]
     Active Substance: OXYCODONE HYDROCHLORIDE
     Indication: PRODUCT USED FOR UNKNOWN INDICATION
     Dosage: UNKNOWN
     Route: 048

REACTIONS (6)
  - Intervertebral disc protrusion [Unknown]
  - Rotator cuff syndrome [Unknown]
  - Drug dependence [Unknown]
  - Loss of consciousness [Unknown]
  - Gastrointestinal disorder [Unknown]
  - Road traffic accident [Unknown]
